FAERS Safety Report 8238719-7 (Version None)
Quarter: 2012Q1

REPORT INFORMATION
  Report Type: 
  Country: None (occurrence: None)
  Receive Date: 20120327
  Receipt Date: 20120322
  Transmission Date: 20120608
  Serious: Yes (Hospitalization)
  Sender: FDA-Public Use
  Company Number: US-B.I. PHARMACEUTICALS,INC./RIDGEFIELD-2012-BP-03516BP

PATIENT
  Sex: Male
  Weight: 59.87 kg

DRUGS (11)
  1. FERROUS SULFATE TAB [Concomitant]
     Dosage: 325 MG
  2. AMOXICILLIN [Concomitant]
     Dosage: 2000 MG
  3. ASPIRIN [Concomitant]
     Dosage: 81 MG
  4. AMIODARONE HCL [Concomitant]
     Dosage: 200 MG
  5. WARFARIN SODIUM [Concomitant]
     Dosage: 5 MG
  6. PRADAXA [Suspect]
     Dosage: 300 MG
     Route: 048
     Dates: start: 20111013, end: 20111105
  7. NITROGLYCERIN [Concomitant]
     Dosage: 0.4 MG
     Route: 060
  8. WARFARIN SODIUM [Concomitant]
  9. OMEPRAZOLE [Concomitant]
     Dosage: 20 MG
  10. FUROSEMIDE [Concomitant]
     Dosage: 20 MG
  11. CELEXA [Concomitant]
     Dosage: 20 MG

REACTIONS (3)
  - NEPHROLITHIASIS [None]
  - HAEMATURIA [None]
  - HAEMORRHAGE [None]
